FAERS Safety Report 18247038 (Version 8)
Quarter: 2023Q1

REPORT INFORMATION
  Report Type: Report from Study
  Country: US (occurrence: US)
  Receive Date: 20200909
  Receipt Date: 20230220
  Transmission Date: 20230417
  Serious: Yes (Death, Hospitalization, Other)
  Sender: FDA-Public Use
  Company Number: US-SHIRE-US202028783

PATIENT
  Sex: Female

DRUGS (16)
  1. TEDUGLUTIDE [Suspect]
     Active Substance: TEDUGLUTIDE
     Indication: Short-bowel syndrome
     Dosage: 0.23 MILLILITER, QD
     Route: 058
     Dates: start: 20180303
  2. TEDUGLUTIDE [Suspect]
     Active Substance: TEDUGLUTIDE
     Indication: Short-bowel syndrome
     Dosage: 0.23 MILLILITER, QD
     Route: 058
     Dates: start: 20180303
  3. TEDUGLUTIDE [Suspect]
     Active Substance: TEDUGLUTIDE
     Indication: Short-bowel syndrome
     Dosage: 0.23 MILLILITER, QD
     Route: 058
     Dates: start: 20180303
  4. TEDUGLUTIDE [Suspect]
     Active Substance: TEDUGLUTIDE
     Indication: Short-bowel syndrome
     Dosage: 0.23 MILLILITER, QD
     Route: 058
     Dates: start: 20180303
  5. TEDUGLUTIDE [Suspect]
     Active Substance: TEDUGLUTIDE
     Dosage: 0.23 MILLILITER, QD
     Route: 058
     Dates: start: 20180322
  6. TEDUGLUTIDE [Suspect]
     Active Substance: TEDUGLUTIDE
     Dosage: 0.23 MILLILITER, QD
     Route: 058
     Dates: start: 20180322
  7. TEDUGLUTIDE [Suspect]
     Active Substance: TEDUGLUTIDE
     Dosage: 0.23 MILLILITER, QD
     Route: 058
     Dates: start: 20180322
  8. TEDUGLUTIDE [Suspect]
     Active Substance: TEDUGLUTIDE
     Dosage: 0.23 MILLILITER, QD
     Route: 058
     Dates: start: 20180322
  9. TEDUGLUTIDE [Suspect]
     Active Substance: TEDUGLUTIDE
     Dosage: UNK UNK, QOD
     Route: 058
  10. TEDUGLUTIDE [Suspect]
     Active Substance: TEDUGLUTIDE
     Dosage: UNK UNK, QOD
     Route: 058
  11. TEDUGLUTIDE [Suspect]
     Active Substance: TEDUGLUTIDE
     Dosage: UNK UNK, QOD
     Route: 058
  12. TEDUGLUTIDE [Suspect]
     Active Substance: TEDUGLUTIDE
     Dosage: UNK UNK, QOD
     Route: 058
  13. TEDUGLUTIDE [Suspect]
     Active Substance: TEDUGLUTIDE
     Dosage: UNK UNK, QD
     Route: 058
     Dates: start: 20180302
  14. TEDUGLUTIDE [Suspect]
     Active Substance: TEDUGLUTIDE
     Dosage: UNK UNK, QD
     Route: 058
     Dates: start: 20180302
  15. TEDUGLUTIDE [Suspect]
     Active Substance: TEDUGLUTIDE
     Dosage: UNK UNK, QD
     Route: 058
     Dates: start: 20180302
  16. TEDUGLUTIDE [Suspect]
     Active Substance: TEDUGLUTIDE
     Dosage: UNK UNK, QD
     Route: 058
     Dates: start: 20180302

REACTIONS (11)
  - Death [Fatal]
  - Device related infection [Recovered/Resolved]
  - Hip fracture [Not Recovered/Not Resolved]
  - Fall [Not Recovered/Not Resolved]
  - Aortic aneurysm [Not Recovered/Not Resolved]
  - Blood iron decreased [Unknown]
  - Syringe issue [Unknown]
  - Product use complaint [Unknown]
  - Product container issue [Unknown]
  - Product quality issue [Unknown]
  - Inappropriate schedule of product administration [Not Recovered/Not Resolved]
